FAERS Safety Report 4295050-2 (Version None)
Quarter: 2004Q1

REPORT INFORMATION
  Report Type: 
  Country: None (occurrence: None)
  Receive Date: 20040213
  Receipt Date: 20040130
  Transmission Date: 20041129
  Serious: Yes (Hospitalization, Other)
  Sender: FDA-Public Use
  Company Number: 2004S1000277

PATIENT
  Age: 74 Year
  Sex: Male

DRUGS (15)
  1. MOBIC [Suspect]
  2. INDOMETHACIN [Suspect]
  3. HYDROCHLOROTHIAZIDE [Concomitant]
  4. ENALAPRIL [Concomitant]
  5. METOPROLOL SUCCRATE XL [Concomitant]
  6. DILTIAZEM [Concomitant]
  7. ASPIRIN [Concomitant]
  8. SIMVASTATIN [Concomitant]
  9. TEMAZEPAM [Concomitant]
  10. GLUCOSAMINE [Concomitant]
  11. CHONDROITIN [Concomitant]
  12. VITAMIN C [Concomitant]
  13. VITAMIN B COMPLEX CAP [Concomitant]
  14. SAW PALMETTO [Concomitant]
  15. STOOL SOFTENER [Concomitant]

REACTIONS (5)
  - CEREBROVASCULAR ACCIDENT [None]
  - ENDOSCOPY ABNORMAL [None]
  - MELAENA [None]
  - MYOCARDIAL INFARCTION [None]
  - SCAR [None]
